FAERS Safety Report 5697786-5 (Version None)
Quarter: 2008Q2

REPORT INFORMATION
  Report Type: 
  Country: None (occurrence: None)
  Receive Date: 20080408
  Receipt Date: 20080331
  Transmission Date: 20081010
  Serious: Yes (Disabling)
  Sender: FDA-Public Use
  Company Number: US-MERCK-0804USA00150

PATIENT
  Age: 6 Year
  Sex: Female

DRUGS (2)
  1. SINGULAIR [Suspect]
     Indication: HYPERSENSITIVITY
     Route: 048
     Dates: start: 20070301, end: 20080301
  2. ALLEGRA [Concomitant]
     Route: 065
     Dates: start: 20071001

REACTIONS (2)
  - ANGER [None]
  - SUICIDAL IDEATION [None]
